FAERS Safety Report 8844584 (Version 1)
Quarter: 2012Q4

REPORT INFORMATION
  Report Type: Spontaneous
  Country: DE (occurrence: None)
  Receive Date: 20121012
  Receipt Date: 20121012
  Transmission Date: 20130627
  Serious: Yes (Other)
  Sender: FDA-Public Use
  Company Number: 2012033598

PATIENT
  Age: 5 Year
  Sex: Male

DRUGS (1)
  1. PRIVIGEN (IMMUNE GLOBULIN INTRAVENOUS (HUMAN) 10% LIQUID) [Suspect]
     Indication: GUILLAIN-BARRE SYNDROME
     Dosage: 2 hours 25 min
     Route: 042
     Dates: start: 20120920, end: 20120920

REACTIONS (4)
  - Hypertensive crisis [None]
  - Epistaxis [None]
  - Blood pressure increased [None]
  - Headache [None]
